FAERS Safety Report 5538432-0 (Version None)
Quarter: 2007Q4

REPORT INFORMATION
  Report Type: 
  Country: None (occurrence: None)
  Receive Date: 20071120
  Receipt Date: 20071014
  Transmission Date: 20080405
  Serious: No
  Sender: FDA-Public Use
  Company Number: WAES 0710USA03037

PATIENT
  Age: 42 Year
  Sex: Male

DRUGS (6)
  1. JANUVIA [Suspect]
     Indication: BLOOD GLUCOSE INCREASED
     Dosage: 100 MG AM PO
     Route: 048
     Dates: start: 20061101, end: 20071012
  2. JANUVIA [Suspect]
     Indication: DIABETES MELLITUS
     Dosage: 100 MG AM PO
     Route: 048
     Dates: start: 20061101, end: 20071012
  3. JANUVIA [Suspect]
     Indication: BLOOD GLUCOSE INCREASED
     Dosage: 100 MG AM PO
     Route: 048
     Dates: start: 20071018, end: 20071018
  4. JANUVIA [Suspect]
     Indication: DIABETES MELLITUS
     Dosage: 100 MG AM PO
     Route: 048
     Dates: start: 20071018, end: 20071018
  5. ALCOHOL [Concomitant]
  6. VITAMINS (UNSPECIFIED) [Concomitant]

REACTIONS (1)
  - RASH PRURITIC [None]
